FAERS Safety Report 15356147 (Version 8)
Quarter: 2018Q4

REPORT INFORMATION
  Report Type: Report from Study
  Country: US (occurrence: US)
  Receive Date: 20180906
  Receipt Date: 20181211
  Transmission Date: 20190204
  Serious: Yes (Hospitalization, Other)
  Sender: FDA-Public Use
  Company Number: US-GILEAD-2018-0358424

PATIENT
  Age: 78 Year
  Sex: Male

DRUGS (5)
  1. WARFARIN [Concomitant]
     Active Substance: WARFARIN
  2. TYVASO [Concomitant]
     Active Substance: TREPROSTINIL
  3. AMBRISENTAN [Suspect]
     Active Substance: AMBRISENTAN
     Dosage: 10 MG, QD
     Route: 065
     Dates: start: 20170831
  4. AMBRISENTAN [Suspect]
     Active Substance: AMBRISENTAN
     Indication: PULMONARY HYPERTENSION
     Dosage: 5 MG, QD
     Route: 065
     Dates: start: 20170831
  5. ORENITRAM [Concomitant]
     Active Substance: TREPROSTINIL

REACTIONS (16)
  - Neck pain [Recovering/Resolving]
  - Productive cough [Unknown]
  - Unevaluable event [Unknown]
  - Myalgia [Unknown]
  - Pleural effusion [Not Recovered/Not Resolved]
  - Chills [Not Recovered/Not Resolved]
  - Dyspnoea [Not Recovered/Not Resolved]
  - Respiratory distress [Unknown]
  - Diarrhoea [Not Recovered/Not Resolved]
  - Oxygen saturation decreased [Not Recovered/Not Resolved]
  - Infusion [Unknown]
  - Unevaluable event [Not Recovered/Not Resolved]
  - Weight decreased [Unknown]
  - Pulmonary hypertension [Unknown]
  - Fatigue [Not Recovered/Not Resolved]
  - Dyspnoea exertional [Not Recovered/Not Resolved]

NARRATIVE: CASE EVENT DATE: 20181106
